FAERS Safety Report 7702643-6 (Version None)
Quarter: 2011Q3

REPORT INFORMATION
  Report Type: 
  Country: None (occurrence: None)
  Receive Date: 20110823
  Receipt Date: 20110816
  Transmission Date: 20111222
  Serious: Yes (Hospitalization)
  Sender: FDA-Public Use
  Company Number: JP-SHIRE-SPV1-2010-01389

PATIENT

DRUGS (13)
  1. DIOVAN [Concomitant]
     Indication: PRODUCT USED FOR UNKNOWN INDICATION
     Dosage: 80 MG, UNKNOWN
     Route: 048
  2. LANTHANUM CARBONATE [Suspect]
     Indication: HYPERPHOSPHATAEMIA
     Dosage: 750 MG, UNKNOWN
     Route: 048
     Dates: start: 20090817, end: 20100204
  3. ALLOPURINOL [Concomitant]
     Dosage: 100 MG, UNKNOWN
     Route: 048
  4. ASPIRIN [Concomitant]
     Indication: PRODUCT USED FOR UNKNOWN INDICATION
     Dosage: 100 MG, UNKNOWN
     Route: 048
  5. CINACALCET HYDROCHLORIDE [Concomitant]
     Indication: HYPERPARATHYROIDISM SECONDARY
     Dosage: 50 MG, UNKNOWN
     Route: 048
     Dates: start: 20090817, end: 20100103
  6. CINACALCET HYDROCHLORIDE [Concomitant]
     Dosage: 75 MG, UNKNOWN
     Route: 048
     Dates: start: 20100104
  7. KALIMATE [Concomitant]
     Indication: PRODUCT USED FOR UNKNOWN INDICATION
     Dosage: 2 DF, UNKNOWN
     Route: 048
  8. ROCALTROL [Concomitant]
     Indication: PRODUCT USED FOR UNKNOWN INDICATION
     Dosage: .25 UG, UNK
     Route: 048
     Dates: start: 20090817, end: 20091122
  9. ALFAROL [Concomitant]
     Indication: PRODUCT USED FOR UNKNOWN INDICATION
     Dosage: .25 UG, UNK
     Route: 048
     Dates: start: 20091123
  10. EPOGIN [Concomitant]
     Indication: PRODUCT USED FOR UNKNOWN INDICATION
     Dosage: 4500 IU, 1X/WEEK
     Route: 042
  11. LANTHANUM CARBONATE [Suspect]
     Dosage: 750 MG, UNKNOWN
     Dates: start: 20100303
  12. RENAGEL [Concomitant]
     Indication: HYPERPHOSPHATAEMIA
     Dosage: 6000 MG, UNKNOWN
     Route: 048
  13. CALCIUM CARBONATE [Concomitant]
     Indication: HYPERPHOSPHATAEMIA
     Dosage: 3000 MG, UNKNOWN
     Route: 048
     Dates: start: 20090817

REACTIONS (2)
  - HYPOCALCAEMIA [None]
  - GASTRIC ULCER HAEMORRHAGE [None]
